FAERS Safety Report 16540850 (Version 1)
Quarter: 2019Q3

REPORT INFORMATION
  Report Type: Spontaneous
  Country: US (occurrence: US)
  Receive Date: 20190707
  Receipt Date: 20190707
  Transmission Date: 20191004
  Serious: Yes (Hospitalization, Disabling)
  Sender: FDA-Public Use
  Company Number: None

PATIENT
  Age: 42 Year
  Sex: Female
  Weight: 98.55 kg

DRUGS (8)
  1. FLOVENT [Concomitant]
     Active Substance: FLUTICASONE PROPIONATE
  2. ACIPHEX [Concomitant]
     Active Substance: RABEPRAZOLE SODIUM
  3. INJECTAFER [Suspect]
     Active Substance: FERRIC CARBOXYMALTOSE
     Indication: SERUM FERRITIN DECREASED
     Dosage: ?          QUANTITY:1 INJECTION(S);OTHER FREQUENCY:ONE TIME;?
     Route: 042
     Dates: start: 20190703, end: 20190703
  4. ALLEGRA [Concomitant]
     Active Substance: FEXOFENADINE HYDROCHLORIDE
  5. INJECTAFER [Suspect]
     Active Substance: FERRIC CARBOXYMALTOSE
     Indication: BLOOD IRON DECREASED
     Dosage: ?          QUANTITY:1 INJECTION(S);OTHER FREQUENCY:ONE TIME;?
     Route: 042
     Dates: start: 20190703, end: 20190703
  6. ZOLOFT [Concomitant]
     Active Substance: SERTRALINE HYDROCHLORIDE
  7. XANAX [Concomitant]
     Active Substance: ALPRAZOLAM
  8. VIT D [Concomitant]
     Active Substance: VITAMIN D NOS

REACTIONS (14)
  - Paraesthesia [None]
  - Vision blurred [None]
  - Myoclonus [None]
  - Blood phosphorus decreased [None]
  - Dizziness [None]
  - Anxiety [None]
  - Heart rate increased [None]
  - Pain [None]
  - Tremor [None]
  - Cough [None]
  - Feeling abnormal [None]
  - Rash [None]
  - Headache [None]
  - Muscle twitching [None]

NARRATIVE: CASE EVENT DATE: 20190703
